FAERS Safety Report 6030000-X (Version None)
Quarter: 2009Q1

REPORT INFORMATION
  Report Type: 
  Country: None (occurrence: None)
  Receive Date: 20090105
  Receipt Date: 20090105
  Transmission Date: 20090719
  Serious: Yes (Other)
  Sender: FDA-Public Use
  Company Number: None

PATIENT
  Age: 44 Year
  Sex: Female
  Weight: 70.3075 kg

DRUGS (1)
  1. CEFDINIR [Suspect]
     Indication: SINUSITIS
     Dosage: 1 TABLET TWICE PER DAY PO
     Route: 048
     Dates: start: 20081223, end: 20081225

REACTIONS (2)
  - DIARRHOEA [None]
  - FUNGAL INFECTION [None]
